FAERS Safety Report 8493352-7 (Version None)
Quarter: 2012Q3

REPORT INFORMATION
  Report Type: 
  Country: None (occurrence: None)
  Receive Date: 20120706
  Receipt Date: 20120625
  Transmission Date: 20120928
  Serious: Yes (Other)
  Sender: FDA-Public Use
  Company Number: AT-ELI_LILLY_AND_COMPANY-AT201206008438

PATIENT
  Sex: Male

DRUGS (1)
  1. HUMULIN N [Suspect]
     Dosage: UNK UNK, UNKNOWN

REACTIONS (4)
  - DRUG INEFFECTIVE [None]
  - LIVER DISORDER [None]
  - UNEVALUABLE EVENT [None]
  - BLOOD GLUCOSE INCREASED [None]
